FAERS Safety Report 16222498 (Version 1)
Quarter: 2019Q2

REPORT INFORMATION
  Report Type: Spontaneous
  Country: US (occurrence: US)
  Receive Date: 20190422
  Receipt Date: 20190422
  Transmission Date: 20190711
  Serious: Yes (Other)
  Sender: FDA-Public Use
  Company Number: US-009507513-1904USA006660

PATIENT
  Sex: Male

DRUGS (2)
  1. PROPECIA [Suspect]
     Active Substance: FINASTERIDE
     Route: 048
  2. FINASTERIDE. [Suspect]
     Active Substance: FINASTERIDE

REACTIONS (4)
  - Hypertension [Unknown]
  - Prostate cancer metastatic [Unknown]
  - Left ventricular hypertrophy [Unknown]
  - Therapeutic response unexpected [Unknown]
